APPROVED DRUG PRODUCT: METHOTREXATE SODIUM
Active Ingredient: METHOTREXATE SODIUM
Strength: EQ 2.5MG BASE
Dosage Form/Route: TABLET;ORAL
Application: A207812 | Product #001 | TE Code: AB
Applicant: ZYDUS PHARMACEUTICALS USA INC
Approved: Jan 13, 2017 | RLD: No | RS: No | Type: RX